FAERS Safety Report 7718721-1 (Version None)
Quarter: 2011Q3

REPORT INFORMATION
  Report Type: 
  Country: None (occurrence: None)
  Receive Date: 20110830
  Receipt Date: 20110817
  Transmission Date: 20111222
  Serious: Yes (Life-Threatening, Hospitalization, Other)
  Sender: FDA-Public Use
  Company Number: JP-SANOFI-AVENTIS-2010SA057884

PATIENT
  Age: 69 Year
  Sex: Male
  Weight: 48.9 kg

DRUGS (11)
  1. TENORMIN [Concomitant]
     Indication: RHEUMATOID ARTHRITIS
     Route: 048
  2. CELECOXIB [Concomitant]
     Indication: RHEUMATOID ARTHRITIS
     Route: 048
  3. ALENDRONATE SODIUM [Concomitant]
     Indication: RHEUMATOID ARTHRITIS
     Route: 048
  4. PREDNISOLONE [Suspect]
     Indication: RHEUMATOID ARTHRITIS
     Route: 048
     Dates: end: 20100916
  5. ALFAROL [Concomitant]
     Indication: RHEUMATOID ARTHRITIS
     Route: 048
  6. ASPENON [Concomitant]
     Indication: RHEUMATOID ARTHRITIS
     Route: 048
  7. AMLODIPINE [Concomitant]
     Route: 048
  8. PREDNISOLONE [Suspect]
     Route: 048
     Dates: start: 20100926
  9. PLAVIX [Suspect]
     Route: 048
     Dates: start: 20100903, end: 20100925
  10. PREDNISOLONE [Suspect]
     Route: 048
     Dates: start: 20100917, end: 20100925
  11. MUCOSTA [Concomitant]
     Indication: RHEUMATOID ARTHRITIS
     Route: 048

REACTIONS (10)
  - HAEMOGLOBIN DECREASED [None]
  - PERIODONTAL DISEASE [None]
  - LYMPHADENOPATHY [None]
  - SEPSIS [None]
  - LYMPHOPENIA [None]
  - AGRANULOCYTOSIS [None]
  - FUSOBACTERIUM INFECTION [None]
  - HERPES SIMPLEX [None]
  - PYREXIA [None]
  - GENITAL CANDIDIASIS [None]
